FAERS Safety Report 8388114-5 (Version None)
Quarter: 2012Q2

REPORT INFORMATION
  Report Type: 
  Country: None (occurrence: None)
  Receive Date: 20120525
  Receipt Date: 20120516
  Transmission Date: 20120825
  Serious: Yes (Hospitalization)
  Sender: FDA-Public Use
  Company Number: IT-NOVOPROD-351894

PATIENT
  Age: 71 Year
  Sex: Male

DRUGS (3)
  1. REPAGLINIDE [Suspect]
     Indication: TYPE 2 DIABETES MELLITUS
     Dosage: 6 MG, QD
     Route: 048
  2. VICTOZA [Suspect]
     Indication: TYPE 2 DIABETES MELLITUS
     Dosage: 1.2 MG, QD
     Route: 058
     Dates: start: 20101026, end: 20120208
  3. METBAY [Concomitant]
     Dosage: 2500 MG, QD
     Route: 048

REACTIONS (2)
  - PANCREATITIS ACUTE [None]
  - ABDOMINAL PAIN [None]
